FAERS Safety Report 21177067 (Version 1)
Quarter: 2022Q3

REPORT INFORMATION
  Report Type: Spontaneous
  Country: US (occurrence: None)
  Receive Date: 20220804
  Receipt Date: 20220804
  Transmission Date: 20221027
  Serious: No
  Sender: FDA-Public Use
  Company Number: None

PATIENT
  Age: 31 Year
  Sex: Male
  Weight: 87.75 kg

DRUGS (6)
  1. FINASTERIDE [Suspect]
     Active Substance: FINASTERIDE
     Indication: Androgenetic alopecia
     Dosage: OTHER QUANTITY : 1 TABLET(S);?FREQUENCY : DAILY;?
     Route: 048
     Dates: start: 202109, end: 20220218
  2. VITAMIN D [Concomitant]
     Active Substance: VITAMIN D NOS
  3. VITAMIN C [Concomitant]
     Active Substance: ASCORBIC ACID
  4. ZINC [Concomitant]
     Active Substance: ZINC
  5. VITAMIN B12 [Concomitant]
     Active Substance: CYANOCOBALAMIN
  6. Mens gummy multivitamin daily [Concomitant]

REACTIONS (18)
  - Vision blurred [None]
  - Impulsive behaviour [None]
  - Feeling abnormal [None]
  - Feeling abnormal [None]
  - Sinusitis [None]
  - Confusional state [None]
  - Disturbance in attention [None]
  - Nightmare [None]
  - Insomnia [None]
  - Affective disorder [None]
  - Personality change [None]
  - Dry skin [None]
  - Pruritus [None]
  - Therapy cessation [None]
  - Myalgia [None]
  - Fatigue [None]
  - Hot flush [None]
  - Eye pain [None]

NARRATIVE: CASE EVENT DATE: 20210901
